FAERS Safety Report 7515512-1 (Version None)
Quarter: 2011Q2

REPORT INFORMATION
  Report Type: 
  Country: None (occurrence: None)
  Receive Date: 20110601
  Receipt Date: 20100712
  Transmission Date: 20111010
  Serious: Yes (Other)
  Sender: FDA-Public Use
  Company Number: US-PFIZER INC-2010054942

PATIENT
  Sex: Male

DRUGS (1)
  1. CHANTIX [Suspect]
     Indication: SMOKING CESSATION THERAPY
     Dosage: 1 MG, STARTER PACK
     Route: 048
     Dates: start: 20070313, end: 20070505

REACTIONS (8)
  - DEPRESSION [None]
  - SUICIDAL IDEATION [None]
  - MOOD SWINGS [None]
  - ANGER [None]
  - AGITATION [None]
  - INSOMNIA [None]
  - DISORIENTATION [None]
  - ANXIETY [None]
